FAERS Safety Report 17043056 (Version 1)
Quarter: 2019Q4

REPORT INFORMATION
  Report Type: Spontaneous
  Country: US (occurrence: US)
  Receive Date: 20191017
  Receipt Date: 20191017
  Transmission Date: 20200122
  Serious: No
  Sender: FDA-Public Use
  Company Number: None

PATIENT
  Age: 74 Year
  Sex: Male
  Weight: 92.99 kg

DRUGS (13)
  1. ATORVASTATIN [Concomitant]
     Active Substance: ATORVASTATIN
  2. ACYCLOVIR. [Concomitant]
     Active Substance: ACYCLOVIR
  3. LEVOFLAXIN [Concomitant]
     Active Substance: LEVOFLOXACIN
  4. CARVEDILOL. [Concomitant]
     Active Substance: CARVEDILOL
  5. ALLOPURINOL. [Concomitant]
     Active Substance: ALLOPURINOL
  6. TRADJENTA [Concomitant]
     Active Substance: LINAGLIPTIN
  7. VENETOCLAX. [Suspect]
     Active Substance: VENETOCLAX
  8. MULTIVITAMIN [Concomitant]
     Active Substance: VITAMINS
  9. VENCLEXTA [Concomitant]
     Active Substance: VENETOCLAX
  10. AMLODIPINE [Concomitant]
     Active Substance: AMLODIPINE BESYLATE
  11. ELIQUIS [Concomitant]
     Active Substance: APIXABAN
  12. TYLENOL [Concomitant]
     Active Substance: ACETAMINOPHEN
  13. VENCLEXTA [Suspect]
     Active Substance: VENETOCLAX
     Indication: ACUTE MYELOID LEUKAEMIA
     Dosage: ?          QUANTITY:4 DF DOSAGE FORM;?
     Route: 048
     Dates: start: 20190617, end: 20190913

REACTIONS (1)
  - Skin discolouration [None]

NARRATIVE: CASE EVENT DATE: 201907
